FAERS Safety Report 14279979 (Version 3)
Quarter: 2019Q2

REPORT INFORMATION
  Report Type: Report from Study
  Country: US (occurrence: US)
  Receive Date: 20171212
  Receipt Date: 20190521
  Transmission Date: 20190711
  Serious: Yes (Hospitalization)
  Sender: FDA-Public Use
  Company Number: US-ACTELION-A-US2017-160930

PATIENT
  Sex: Female

DRUGS (3)
  1. OPSUMIT [Suspect]
     Active Substance: MACITENTAN
     Indication: PULMONARY ARTERIAL HYPERTENSION
     Dosage: 10 MG, QD
     Route: 048
     Dates: start: 20140523
  2. PROLIA [Concomitant]
     Active Substance: DENOSUMAB
     Dosage: 60 MG, Q6 MONTHS
     Route: 058
     Dates: start: 20160412
  3. AMPICILLIN [Concomitant]
     Active Substance: AMPICILLIN
     Indication: ARTHRALGIA
     Dosage: UNK

REACTIONS (6)
  - Arthralgia [Unknown]
  - Medical device removal [Not Recovered/Not Resolved]
  - Postoperative wound infection [Recovered/Resolved]
  - Fall [Recovered/Resolved]
  - Hip arthroplasty [Not Recovered/Not Resolved]
  - Infection prophylaxis [Unknown]
